FAERS Safety Report 4943038-8 (Version None)
Quarter: 2006Q1

REPORT INFORMATION
  Report Type: 
  Country: None (occurrence: None)
  Receive Date: 20060314
  Receipt Date: 20060306
  Transmission Date: 20060701
  Serious: Yes (Death)
  Sender: FDA-Public Use
  Company Number: JP-JPN-A200600872

PATIENT
  Age: 91 Year

DRUGS (1)
  1. PAXIL [Suspect]
     Indication: DRUG USE FOR UNKNOWN INDICATION
     Dosage: 20MG PER DAY
     Route: 048

REACTIONS (5)
  - CHEST PAIN [None]
  - DEATH [None]
  - PHARYNGEAL OEDEMA [None]
  - SHOCK [None]
  - WHEEZING [None]
